FAERS Safety Report 9541960 (Version 1)
Quarter: 2013Q3

REPORT INFORMATION
  Report Type: Spontaneous
  Country: US (occurrence: None)
  Receive Date: 20130919
  Receipt Date: 20130919
  Transmission Date: 20140515
  Serious: No
  Sender: FDA-Public Use
  Company Number: None

PATIENT
  Age: 10 Year
  Sex: Female
  Weight: 30.39 kg

DRUGS (3)
  1. MONTELUKAST SOD [Suspect]
     Indication: ASTHMA
     Dosage: 1 TABLET
     Route: 048
  2. MONTELUKAST SOD [Suspect]
     Indication: HYPERSENSITIVITY
     Dosage: 1 TABLET
     Route: 048
  3. MONTELUKAST SOD [Suspect]
     Indication: ALLERGY PROPHYLAXIS
     Dosage: 1 TABLET
     Route: 048

REACTIONS (6)
  - Nightmare [None]
  - Confusional state [None]
  - Fear [None]
  - Memory impairment [None]
  - Hallucination, visual [None]
  - Product substitution issue [None]
